FAERS Safety Report 4509422-1 (Version None)
Quarter: 2004Q4

REPORT INFORMATION
  Report Type: 
  Country: None (occurrence: None)
  Receive Date: 20041025
  Receipt Date: 20040629
  Transmission Date: 20050328
  Serious: Yes (Hospitalization)
  Sender: FDA-Public Use
  Company Number: US-JNJFOC-20040700388

PATIENT
  Age: 76 Year
  Sex: Female
  Weight: 61.2356 kg

DRUGS (12)
  1. INFLIXIMAB (INFLIXIMAB, RECOMBINANT) LYOPHILIZED POWDER [Suspect]
     Indication: RHEUMATOID ARTHRITIS
     Dosage: INTRAVENOUS
     Route: 042
     Dates: start: 20001113, end: 20021101
  2. VASOTEC [Concomitant]
  3. DEXTRA (DEXTROMETHORPHAN HYDROBROMIDE) [Concomitant]
  4. PREDNISONE [Concomitant]
  5. ACTONEL [Concomitant]
  6. ZOCOR [Concomitant]
  7. ULTRAM [Concomitant]
  8. HUMIRA [Concomitant]
  9. CALCIUM PLUS D (CALCIUM) [Concomitant]
  10. VITAMIN B COMPLEX (B-KOMPLEX ^LECIVA^) [Concomitant]
  11. VITAMIN C (ASCORBIC ACID) [Concomitant]
  12. METHOTREXATE [Concomitant]

REACTIONS (1)
  - CELLULITIS [None]
